FAERS Safety Report 10168932 (Version 1)
Quarter: 2014Q2

REPORT INFORMATION
  Report Type: Spontaneous
  Country: US (occurrence: None)
  Receive Date: 20140509
  Receipt Date: 20140509
  Transmission Date: 20141212
  Serious: Yes (Death, Hospitalization)
  Sender: FDA-Public Use
  Company Number: FK201401650

PATIENT
  Age: 98 Year
  Sex: Male

DRUGS (3)
  1. HEPARIN SODIUM INJECTION, USP (HEPARIN SODIUM) (HEPARIN SODIUM) [Suspect]
     Indication: PRODUCT USED FOR UNKNOWN INDICATION
     Dates: start: 201401, end: 201402
  2. SYNTHROID (LEVOTHYROXINE SODIUM) [Concomitant]
  3. MULTIVITAMIN (VIGRAN) [Concomitant]

REACTIONS (2)
  - Haemorrhage [None]
  - Pyrexia [None]
